FAERS Safety Report 7194532-3 (Version None)
Quarter: 2010Q4

REPORT INFORMATION
  Report Type: 
  Country: None (occurrence: None)
  Receive Date: 20101223
  Receipt Date: 20101214
  Transmission Date: 20110411
  Serious: Yes (Other)
  Sender: FDA-Public Use
  Company Number: ES-WATSON-2010-16247

PATIENT
  Age: 65 Year
  Sex: Male

DRUGS (2)
  1. PREDNISONE [Suspect]
     Indication: COLITIS ULCERATIVE
     Dosage: 5 MG, DAILY
     Route: 065
     Dates: start: 20071101
  2. METHOTREXATE [Suspect]
     Indication: COLITIS ULCERATIVE
     Dosage: UNK
     Dates: start: 20010601, end: 20071101

REACTIONS (2)
  - HERPES VIRUS INFECTION [None]
  - KAPOSI'S SARCOMA [None]
